FAERS Safety Report 13963353 (Version 1)
Quarter: 2017Q3

REPORT INFORMATION
  Report Type: Spontaneous
  Country: US (occurrence: None)
  Receive Date: 20170913
  Receipt Date: 20170913
  Transmission Date: 20171128
  Serious: Yes (Hospitalization)
  Sender: FDA-Public Use
  Company Number: None

PATIENT
  Sex: Female
  Weight: 63.1 kg

DRUGS (28)
  1. SENNA [Concomitant]
     Active Substance: SENNA LEAF\SENNOSIDES\SENNOSIDES A AND B
  2. PREDNISONE. [Concomitant]
     Active Substance: PREDNISONE
  3. LINEZOLID. [Concomitant]
     Active Substance: LINEZOLID
  4. MORPHINE [Concomitant]
     Active Substance: MORPHINE
  5. MAG OXIDE [Concomitant]
     Active Substance: MAGNESIUM OXIDE
  6. MORPHINE [Concomitant]
     Active Substance: MORPHINE
  7. PROTONIX [Concomitant]
     Active Substance: PANTOPRAZOLE SODIUM
  8. DAPTOMYCIN. [Concomitant]
     Active Substance: DAPTOMYCIN
  9. EPCLUSA [Suspect]
     Active Substance: SOFOSBUVIR\VELPATASVIR
     Indication: HEPATITIS C
     Route: 048
     Dates: start: 20170331, end: 20170623
  10. ATOVAQUONE. [Concomitant]
     Active Substance: ATOVAQUONE
  11. THIAMINE. [Concomitant]
     Active Substance: THIAMINE
  12. FLOMAX [Concomitant]
     Active Substance: TAMSULOSIN HYDROCHLORIDE
  13. FAMOTIDINE. [Concomitant]
     Active Substance: FAMOTIDINE
  14. LIDODERM [Concomitant]
     Active Substance: LIDOCAINE
  15. BUMETANIDE. [Concomitant]
     Active Substance: BUMETANIDE
  16. LACTULOSE. [Concomitant]
     Active Substance: LACTULOSE
  17. TACROLIMUS. [Concomitant]
     Active Substance: TACROLIMUS
  18. MAGNESIUM [Concomitant]
     Active Substance: MAGNESIUM
  19. CIPROFLOXACIN. [Concomitant]
     Active Substance: CIPROFLOXACIN
  20. PANTOPRAZOLE [Concomitant]
     Active Substance: PANTOPRAZOLE
  21. CALCIUM + [Concomitant]
  22. VALCYTE [Concomitant]
     Active Substance: VALGANCICLOVIR HYDROCHLORIDE
  23. RIBAVIRIN. [Suspect]
     Active Substance: RIBAVIRIN
     Indication: HEPATITIS C
     Route: 048
     Dates: start: 20170331, end: 20170623
  24. ASPIRIN. [Concomitant]
     Active Substance: ASPIRIN
  25. NYSTATIN. [Concomitant]
     Active Substance: NYSTATIN
  26. TRAZODONE [Concomitant]
     Active Substance: TRAZODONE HYDROCHLORIDE
  27. ZORTRESS [Concomitant]
     Active Substance: EVEROLIMUS
  28. FLAGYL [Concomitant]
     Active Substance: METRONIDAZOLE\METRONIDAZOLE HYDROCHLORIDE

REACTIONS (2)
  - Pyrexia [None]
  - Liver abscess [None]

NARRATIVE: CASE EVENT DATE: 20170523
